FAERS Safety Report 10954044 (Version 2)
Quarter: 2015Q1

REPORT INFORMATION
  Report Type: Spontaneous
  Country: US (occurrence: US)
  Receive Date: 20150325
  Receipt Date: 20150331
  Transmission Date: 20150721
  Serious: Yes (Other)
  Sender: FDA-Public Use
  Company Number: US-RB-074683-15

PATIENT
  Age: 84 Year
  Sex: Female

DRUGS (1)
  1. MUCINEX [Suspect]
     Active Substance: GUAIFENESIN
     Indication: PRODUCT USED FOR UNKNOWN INDICATION
     Dosage: 0.25 INCH OF THE DOSING CUP (LESS THAN 20ML DOSE, UNKNOWN FREQUENCY). ABOUT 6 DOSES TILL 15-MAR-2015
     Route: 065
     Dates: start: 20150314

REACTIONS (3)
  - Eye discharge [Not Recovered/Not Resolved]
  - Epistaxis [Not Recovered/Not Resolved]
  - Cough [Not Recovered/Not Resolved]

NARRATIVE: CASE EVENT DATE: 201503
